FAERS Safety Report 6738655-9 (Version None)
Quarter: 2010Q2

REPORT INFORMATION
  Report Type: 
  Country: None (occurrence: None)
  Receive Date: 20100524
  Receipt Date: 20100423
  Transmission Date: 20101027
  Serious: No
  Sender: FDA-Public Use
  Company Number: US-BAXTER-2010BH005034

PATIENT
  Age: 41 Year
  Sex: Male
  Weight: 126 kg

DRUGS (1)
  1. HEPARIN SODIUM INJECTION [Suspect]
     Indication: DIALYSIS
     Route: 042
     Dates: start: 20061101

REACTIONS (5)
  - ARTHRALGIA [None]
  - DIZZINESS [None]
  - HEADACHE [None]
  - NAUSEA [None]
  - SKIN DISCOLOURATION [None]
